FAERS Safety Report 8792001 (Version 1)
Quarter: 2012Q4

REPORT INFORMATION
  Report Type: 
  Country: JP (occurrence: JP)
  Receive Date: 20120918
  Receipt Date: 20120918
  Transmission Date: 20130627
  Serious: Yes (Other)
  Sender: FDA-Public Use
  Company Number: JP-JNJFOC-20120905914

PATIENT
  Age: 92 Year
  Sex: Female

DRUGS (5)
  1. RISPERDAL [Suspect]
     Indication: RESTLESSNESS
     Route: 048
     Dates: start: 20120722, end: 20120727
  2. NIFEDIPINE [Concomitant]
     Route: 048
  3. CELECOX [Concomitant]
     Route: 048
  4. GASTER [Concomitant]
     Route: 048
  5. PARENTERAL NUTRITION [Concomitant]
     Route: 065

REACTIONS (1)
  - Toxic skin eruption [Recovered/Resolved]
